FAERS Safety Report 6412561-1 (Version None)
Quarter: 2009Q4

REPORT INFORMATION
  Report Type: 
  Country: None (occurrence: None)
  Receive Date: 20091023
  Receipt Date: 20091013
  Transmission Date: 20100525
  Serious: Yes (Other)
  Sender: FDA-Public Use
  Company Number: DE-CELGENEUS-062-20484-09101328

PATIENT
  Sex: Male

DRUGS (1)
  1. INNOHEP [Suspect]
     Route: 058
     Dates: start: 20090923, end: 20090923

REACTIONS (1)
  - TRANSMISSION OF AN INFECTIOUS AGENT VIA A MEDICINAL PRODUCT [None]
